FAERS Safety Report 4779423-7 (Version None)
Quarter: 2005Q3

REPORT INFORMATION
  Report Type: 
  Country: None (occurrence: None)
  Receive Date: 20050914
  Receipt Date: 20050112
  Transmission Date: 20060218
  Serious: Yes (Death, Hospitalization)
  Sender: FDA-Public Use
  Company Number: 163-20785-05010275

PATIENT
  Age: 73 Year
  Sex: Male
  Weight: 87.5 kg

DRUGS (6)
  1. THALOMID [Suspect]
     Indication: MULTIPLE MYELOMA
     Dosage: 50 MG, QHS, ORAL;  50 MG, ORAL
     Route: 048
     Dates: start: 20030221, end: 20030908
  2. THALOMID [Suspect]
     Indication: MULTIPLE MYELOMA
     Dosage: 50 MG, QHS, ORAL;  50 MG, ORAL
     Route: 048
     Dates: start: 20031003, end: 20050101
  3. PREDNISONE [Suspect]
     Indication: MULTIPLE MYELOMA
     Dosage: 50 MG, QOD, ORAL
     Route: 048
     Dates: start: 20031003, end: 20050101
  4. DOXIL [Suspect]
     Indication: MULTIPLE MYELOMA
     Dosage: 40 MG/M2
     Dates: start: 20030221, end: 20030908
  5. VINCRISTINE [Suspect]
     Indication: MULTIPLE MYELOMA
     Dosage: 2 MG
     Dates: start: 20030221, end: 20030908
  6. DECADRON [Suspect]
     Indication: MULTIPLE MYELOMA
     Dosage: 40 MG, ORAL
     Route: 048
     Dates: start: 20030221, end: 20030908

REACTIONS (6)
  - ASTHENIA [None]
  - BACK PAIN [None]
  - DEATH [None]
  - FALL [None]
  - PNEUMONIA ASPIRATION [None]
  - URINARY INCONTINENCE [None]
